FAERS Safety Report 15240603 (Version 1)
Quarter: 2018Q3

REPORT INFORMATION
  Report Type: Spontaneous
  Country: SE (occurrence: SE)
  Receive Date: 20180804
  Receipt Date: 20180804
  Transmission Date: 20181010
  Serious: Yes (Hospitalization, Other)
  Sender: FDA-Public Use
  Company Number: SE-UNICHEM PHARMACEUTICALS (USA) INC-UCM201807-000181

PATIENT
  Age: 28 Year
  Sex: Female

DRUGS (2)
  1. AMLODIPINE [Suspect]
     Active Substance: AMLODIPINE BESYLATE
     Dosage: 1 G
  2. METOPROLOL. [Suspect]
     Active Substance: METOPROLOL
     Dosage: 10G

REACTIONS (6)
  - Poisoning [Recovered/Resolved]
  - Drug level increased [Recovered/Resolved]
  - Overdose [Recovered/Resolved]
  - Shock [Recovered/Resolved]
  - Oliguria [Recovered/Resolved]
  - Disorientation [Recovered/Resolved]
